FAERS Safety Report 18255224 (Version 1)
Quarter: 2020Q3

REPORT INFORMATION
  Report Type: Spontaneous
  Country: US (occurrence: US)
  Receive Date: 20200911
  Receipt Date: 20200911
  Transmission Date: 20201103
  Serious: No
  Sender: FDA-Public Use
  Company Number: US-009507513-2008USA008699

PATIENT
  Sex: Male

DRUGS (7)
  1. PEGINTRON [Suspect]
     Active Substance: PEGINTERFERON ALFA-2B
     Indication: HERPES SIMPLEX
     Dosage: 1 MICROGRAM PER KILOGRAM, QW
     Route: 042
  2. CIDOFOVIR. [Concomitant]
     Active Substance: CIDOFOVIR
     Indication: HERPES SIMPLEX
     Dosage: 5 MILLIGRAM/KILOGRAM, QW
     Route: 042
  3. FOSCARNET SODIUM. [Concomitant]
     Active Substance: FOSCARNET SODIUM
     Indication: HERPES SIMPLEX
     Dosage: 120 MILLIGRAM/KILOGRAM, QD
     Route: 042
  4. ACYCLOVIR. [Concomitant]
     Active Substance: ACYCLOVIR
     Indication: HERPES SIMPLEX
     Dosage: 30 MG/KG/DAY WITH INCREASES UP TO 60 MG/KG/DAY
     Route: 042
  5. STERILE DILUENT (WATER) [Concomitant]
     Active Substance: WATER
     Dosage: UNK
  6. ACYCLOVIR. [Concomitant]
     Active Substance: ACYCLOVIR
     Indication: HERPES SIMPLEX
     Dosage: 30 MG/KG/DAY WITH INCREASES UP TO 120 MG/KG/DAY
     Route: 048
  7. CIDOFOVIR. [Concomitant]
     Active Substance: CIDOFOVIR
     Indication: HERPES SIMPLEX
     Dosage: 2 ? 3%
     Route: 061

REACTIONS (1)
  - Product use in unapproved indication [Unknown]
